FAERS Safety Report 8614250-1 (Version None)
Quarter: 2012Q3

REPORT INFORMATION
  Report Type: 
  Country: None (occurrence: None)
  Receive Date: 20120823
  Receipt Date: 20120216
  Transmission Date: 20120928
  Serious: Yes (Hospitalization)
  Sender: FDA-Public Use
  Company Number: CN-SANOFI-AVENTIS-2012SA011404

PATIENT
  Age: 64 Year
  Sex: Male

DRUGS (1)
  1. INDAPAMIDE [Suspect]
     Indication: HYPERTENSION
     Route: 048

REACTIONS (9)
  - LONG QT SYNDROME [None]
  - HYPONATRAEMIA [None]
  - DIZZINESS [None]
  - VENTRICULAR EXTRASYSTOLES [None]
  - HYPOKALAEMIA [None]
  - ASTHENIA [None]
  - CARDIAC ARREST [None]
  - BRUGADA SYNDROME [None]
  - TORSADE DE POINTES [None]
